FAERS Safety Report 12749061 (Version 1)
Quarter: 2016Q3

REPORT INFORMATION
  Report Type: Report from Study
  Country: AU (occurrence: AU)
  Receive Date: 20160915
  Receipt Date: 20160915
  Transmission Date: 20161109
  Serious: Yes (Other)
  Sender: FDA-Public Use
  Company Number: AU-ABBVIE-16P-008-1727318-00

PATIENT
  Age: 66 Year
  Sex: Male

DRUGS (1)
  1. LUCRIN DEPOT [Suspect]
     Active Substance: LEUPROLIDE ACETATE
     Indication: PROSTATE CANCER
     Route: 050
     Dates: start: 20150619, end: 20160605

REACTIONS (3)
  - Inflammation [Recovering/Resolving]
  - Necrosis [Recovering/Resolving]
  - Skin warm [Recovering/Resolving]

NARRATIVE: CASE EVENT DATE: 20160501
